FAERS Safety Report 10592866 (Version 1)
Quarter: 2014Q4

REPORT INFORMATION
  Report Type: Spontaneous
  Country: US (occurrence: None)
  Receive Date: 20141118
  Receipt Date: 20141118
  Transmission Date: 20150529
  Serious: Yes (Disabling)
  Sender: FDA-Public Use
  Company Number: None

PATIENT
  Age: 56 Year
  Sex: Female

DRUGS (1)
  1. LEVOFLOXACIN 750 MG DR. REDDY^S LAB [Suspect]
     Active Substance: LEVOFLOXACIN
     Indication: DIVERTICULITIS
     Route: 048
     Dates: start: 20111116, end: 20111120

REACTIONS (4)
  - Tendon disorder [None]
  - Gait disturbance [None]
  - Tendon pain [None]
  - Connective tissue disorder [None]

NARRATIVE: CASE EVENT DATE: 20111116
